FAERS Safety Report 4855348-3 (Version None)
Quarter: 2005Q4

REPORT INFORMATION
  Report Type: 
  Country: None (occurrence: None)
  Receive Date: 20051125
  Receipt Date: 20050630
  Transmission Date: 20060501
  Serious: Yes (Hospitalization)
  Sender: FDA-Public Use
  Company Number: US-JNJFOC-20050700236

PATIENT
  Age: 58 Year
  Sex: Female

DRUGS (13)
  1. LEVOFLOXACIN [Suspect]
     Indication: NASOPHARYNGITIS
     Dosage: 750 MG
     Dates: start: 20050606
  2. CLOPIDOGREL [Concomitant]
  3. ASPIRIN [Concomitant]
  4. SIMVASTATIN [Concomitant]
  5. VERAPAMIL [Concomitant]
  6. RANITIDINE [Concomitant]
  7. PROCHLORPERAZINE EDISYLATE [Concomitant]
  8. LORAZEPAM [Concomitant]
  9. ROBITUSSIN AC (CHERACOL /USA/ ) [Concomitant]
  10. LORCET-HD [Concomitant]
  11. CEFTRIAXONE [Concomitant]
  12. GEMCITABINE HYDROCHLORIDE [Concomitant]
  13. CARBOPLATIN [Concomitant]

REACTIONS (1)
  - GRAND MAL CONVULSION [None]
